FAERS Safety Report 8202768-5 (Version None)
Quarter: 2012Q1

REPORT INFORMATION
  Report Type: 
  Country: None (occurrence: None)
  Receive Date: 20120312
  Receipt Date: 20120312
  Transmission Date: 20120608
  Serious: Yes (Other)
  Sender: FDA-Public Use
  Company Number: None

PATIENT
  Age: 45 Year
  Sex: Female
  Weight: 95.254 kg

DRUGS (6)
  1. ALLEGRA [Concomitant]
  2. LEVOFLOXACIN [Concomitant]
     Dosage: 500 MG
     Route: 048
     Dates: start: 20120203, end: 20120209
  3. FLONASE [Concomitant]
  4. LEVOFLOXACIN [Suspect]
     Indication: BRONCHITIS
     Dosage: 500 MG
     Route: 048
     Dates: start: 20120203, end: 20120209
  5. NAPROXEN [Concomitant]
  6. SYMBICORT [Concomitant]

REACTIONS (5)
  - ARTHRALGIA [None]
  - BACK PAIN [None]
  - ABDOMINAL PAIN [None]
  - PAIN IN EXTREMITY [None]
  - PAIN [None]
